FAERS Safety Report 7293136-1 (Version None)
Quarter: 2011Q1

REPORT INFORMATION
  Report Type: 
  Country: None (occurrence: None)
  Receive Date: 20110215
  Receipt Date: 20110210
  Transmission Date: 20110831
  Serious: Yes (Hospitalization)
  Sender: FDA-Public Use
  Company Number: FR-ROCHE-759331

PATIENT
  Sex: Male

DRUGS (3)
  1. TERCIAN [Suspect]
     Route: 048
     Dates: start: 20090721, end: 20110118
  2. RIVOTRIL [Suspect]
     Dosage: STRENGTH 2.5 MG/ML
     Route: 048
     Dates: start: 20090516
  3. IMOVANE [Suspect]
     Route: 048
     Dates: start: 20090307, end: 20110118

REACTIONS (1)
  - AKATHISIA [None]
